FAERS Safety Report 14078429 (Version 1)
Quarter: 2017Q4

REPORT INFORMATION
  Report Type: Spontaneous
  Country: US (occurrence: US)
  Receive Date: 20171012
  Receipt Date: 20171012
  Transmission Date: 20180321
  Serious: No
  Sender: FDA-Public Use
  Company Number: US-PFIZER INC-2017439403

PATIENT
  Age: 53 Year
  Sex: Female
  Weight: 117.91 kg

DRUGS (1)
  1. SPIRONOLACTONE. [Suspect]
     Active Substance: SPIRONOLACTONE
     Indication: RENAL DISORDER
     Dosage: UNK

REACTIONS (1)
  - Muscle spasms [Unknown]
